FAERS Safety Report 6924360-2 (Version None)
Quarter: 2010Q3

REPORT INFORMATION
  Report Type: 
  Country: None (occurrence: None)
  Receive Date: 20100811
  Receipt Date: 20100811
  Transmission Date: 20110219
  Serious: Yes (Other)
  Sender: FDA-Public Use
  Company Number: None

PATIENT
  Sex: Male
  Weight: 74.8435 kg

DRUGS (3)
  1. BACTRIM DS [Suspect]
     Indication: EPIDIDYMITIS
     Dosage: 1 BID X 2 WKS
     Dates: start: 20080111
  2. BACTRIM DS [Suspect]
     Indication: PROSTATITIS
     Dosage: 1 BID X 2 WKS
     Dates: start: 20080111
  3. CIPRO [Suspect]
     Dosage: 500 MG BID ORAL
     Route: 048
     Dates: start: 20080123

REACTIONS (2)
  - HYPOAESTHESIA [None]
  - RASH PRURITIC [None]
